FAERS Safety Report 13999770 (Version 2)
Quarter: 2017Q4

REPORT INFORMATION
  Report Type: Spontaneous
  Country: FR (occurrence: FR)
  Receive Date: 20170922
  Receipt Date: 20171205
  Transmission Date: 20180321
  Serious: Yes (Hospitalization, Other)
  Sender: FDA-Public Use
  Company Number: FR-ROCHE-1995153

PATIENT
  Age: 43 Year
  Sex: Female
  Weight: 73 kg

DRUGS (4)
  1. INEXIUM [Concomitant]
     Active Substance: ESOMEPRAZOLE
     Indication: GASTROOESOPHAGEAL REFLUX DISEASE
     Route: 048
  2. ROACTEMRA [Suspect]
     Active Substance: TOCILIZUMAB
     Dosage: SEVERAL MONTH
     Route: 042
     Dates: start: 20170314
  3. ROACTEMRA [Suspect]
     Active Substance: TOCILIZUMAB
     Indication: RHEUMATOID ARTHRITIS
     Dosage: SEVERAL MONTH
     Route: 042
     Dates: start: 20141013
  4. ROACTEMRA [Suspect]
     Active Substance: TOCILIZUMAB
     Dosage: SEVERAL MONTH
     Route: 042
     Dates: start: 20170512

REACTIONS (3)
  - Endometrial adenocarcinoma [Unknown]
  - Interstitial lung disease [Recovered/Resolved]
  - Rash maculo-papular [Recovered/Resolved]

NARRATIVE: CASE EVENT DATE: 20161017
